FAERS Safety Report 6113136-4 (Version None)
Quarter: 2009Q1

REPORT INFORMATION
  Report Type: 
  Country: None (occurrence: None)
  Receive Date: 20090312
  Receipt Date: 20090305
  Transmission Date: 20090719
  Serious: Yes (Hospitalization)
  Sender: FDA-Public Use
  Company Number: US-MERCK-0903USA01589

PATIENT
  Age: 49 Year
  Sex: Male
  Weight: 68 kg

DRUGS (3)
  1. SORIATANE [Suspect]
     Indication: PSORIASIS
     Route: 048
     Dates: start: 20080301, end: 20081120
  2. ALBUTEROL [Concomitant]
     Route: 065
  3. ZETIA [Suspect]
     Route: 048

REACTIONS (3)
  - CORONARY ARTERY STENOSIS [None]
  - HYPOTENSION [None]
  - MYOCARDIAL INFARCTION [None]
